FAERS Safety Report 7399051-7 (Version None)
Quarter: 2011Q1

REPORT INFORMATION
  Report Type: 
  Country: None (occurrence: None)
  Receive Date: 20110328
  Receipt Date: 20110318
  Transmission Date: 20110831
  Serious: Yes (Death, Life-Threatening, Hospitalization)
  Sender: FDA-Public Use
  Company Number: 864383

PATIENT
  Age: 73 Year
  Sex: Male
  Weight: 87.3 kg

DRUGS (7)
  1. CYCLOPHOSPHAMIDE [Suspect]
     Indication: CHRONIC LYMPHOCYTIC LEUKAEMIA
     Dosage: 1240 MG, NOT REPORTED,
     Dates: start: 20101101
  2. CYCLOPHOSPHAMIDE [Suspect]
     Indication: CHRONIC LYMPHOCYTIC LEUKAEMIA
     Dosage: 1240 MG, NOT REPORTED,
     Dates: start: 20101129, end: 20101129
  3. COUMADIN [Concomitant]
  4. RITUXAN [Suspect]
     Indication: CHRONIC LYMPHOCYTIC LEUKAEMIA
     Dosage: 780 MG, NOT REPORTED,
     Dates: start: 20101101
  5. RITUXAN [Suspect]
     Indication: CHRONIC LYMPHOCYTIC LEUKAEMIA
     Dosage: 780 MG, NOT REPORTED,
     Dates: start: 20101129, end: 20101129
  6. NIPENT [Suspect]
     Indication: CHRONIC LYMPHOCYTIC LEUKAEMIA
     Dosage: 8.28 MG, NOT REPORTED, 8.28 MG, NOT REPORTED;
     Dates: start: 20101101
  7. NIPENT [Suspect]
     Indication: CHRONIC LYMPHOCYTIC LEUKAEMIA
     Dosage: 8.28 MG, NOT REPORTED, 8.28 MG, NOT REPORTED;
     Dates: start: 20101129, end: 20101129

REACTIONS (8)
  - CARDIO-RESPIRATORY ARREST [None]
  - PULMONARY ALVEOLAR HAEMORRHAGE [None]
  - UNRESPONSIVE TO STIMULI [None]
  - MOUTH HAEMORRHAGE [None]
  - MYDRIASIS [None]
  - SUBDURAL HAEMATOMA [None]
  - COAGULOPATHY [None]
  - ATRIAL FIBRILLATION [None]
